FAERS Safety Report 4831661-0 (Version None)
Quarter: 2005Q4

REPORT INFORMATION
  Report Type: 
  Country: None (occurrence: None)
  Receive Date: 20051116
  Receipt Date: 20051104
  Transmission Date: 20060501
  Serious: Yes (Hospitalization, Other)
  Sender: FDA-Public Use
  Company Number: 2005131553

PATIENT
  Age: 88 Year
  Sex: Female

DRUGS (5)
  1. ATORVASTATIN CALCIUM [Suspect]
     Indication: DYSLIPIDAEMIA
     Dosage: 10 MG (10 MG, 1 IN 1 D), ORAL
     Route: 048
     Dates: start: 19990201
  2. CALTRATE (CALCIUM CARBONATE) [Concomitant]
  3. RAMIPRIL [Concomitant]
  4. ALL OTHER THERAPEUTIC PRODUCTS (ALL OTHER THERAPEUTIC PRODUCTS) [Concomitant]
  5. ALENDRONATE SODIUM [Concomitant]

REACTIONS (2)
  - CYST [None]
  - FLATULENCE [None]
